FAERS Safety Report 11050412 (Version 1)
Quarter: 2015Q2

REPORT INFORMATION
  Report Type: Report from Study
  Country: US (occurrence: US)
  Receive Date: 20150421
  Receipt Date: 20150421
  Transmission Date: 20150821
  Serious: Yes (Other)
  Sender: FDA-Public Use
  Company Number: US-009507513-1504USA017859

PATIENT

DRUGS (4)
  1. TEMOZOLOMIDE. [Suspect]
     Active Substance: TEMOZOLOMIDE
     Indication: GLIOBLASTOMA MULTIFORME
     Dosage: 75 MG/M2, QD, FOR A MAXIMUM OF 42 CONSECUTIVE DAYS
     Route: 048
  2. MOTEXAFIN GADOLINIUM [Suspect]
     Active Substance: MOTEXAFIN GADOLINIUM
     Indication: GLIOBLASTOMA MULTIFORME
     Dosage: 5 MG/KG, QD,  GIVEN OVER 30 MINUTES ON MONDAY THROUGH FRIDAY DURING WEEKS 1 AND 2 OF RT PLUS TMZ THE
     Route: 042
  3. MOTEXAFIN GADOLINIUM [Suspect]
     Active Substance: MOTEXAFIN GADOLINIUM
     Indication: GLIOSARCOMA
     Dosage: 5 MG/KG THREE TIMES WEEKLY (TIW) DURING WEEKS 3 THROUGH 6 FOR A TOTAL OF 22 DOSES
     Route: 042
  4. TEMOZOLOMIDE. [Suspect]
     Active Substance: TEMOZOLOMIDE
     Indication: GLIOSARCOMA
     Dosage: 200 MG/M2, QD, 5 DAYS EVERY 28 DAYS
     Route: 048

REACTIONS (1)
  - Toxicity to various agents [Unknown]
